FAERS Safety Report 13905523 (Version 1)
Quarter: 2017Q3

REPORT INFORMATION
  Report Type: Report from Study
  Country: BR (occurrence: BR)
  Receive Date: 20170825
  Receipt Date: 20170825
  Transmission Date: 20171127
  Serious: Yes (Other)
  Sender: FDA-Public Use
  Company Number: PHHY2017BR121896

PATIENT
  Age: 71 Year
  Sex: Female
  Weight: 75 kg

DRUGS (1)
  1. DUOTRAVATAN [BAC] [Suspect]
     Active Substance: TIMOLOL MALEATE\TRAVOPROST
     Indication: GLAUCOMA
     Dosage: 1 DRP, QHS IN EACH EYE
     Route: 047

REACTIONS (5)
  - Pain in extremity [Not Recovered/Not Resolved]
  - Mobility decreased [Unknown]
  - Fall [Recovering/Resolving]
  - Hypoaesthesia [Not Recovered/Not Resolved]
  - Wrist fracture [Recovering/Resolving]

NARRATIVE: CASE EVENT DATE: 20170725
